FAERS Safety Report 7561877-4 (Version None)
Quarter: 2011Q2

REPORT INFORMATION
  Report Type: 
  Country: None (occurrence: None)
  Receive Date: 20110621
  Receipt Date: 20110608
  Transmission Date: 20111010
  Serious: Yes (Other)
  Sender: FDA-Public Use
  Company Number: PHHY2011JP42447

PATIENT
  Sex: Female
  Weight: 51 kg

DRUGS (4)
  1. MOBIC [Concomitant]
     Indication: PAIN
     Dosage: 10 MG, UNK
     Route: 048
  2. PREDNISOLONE [Concomitant]
     Indication: MULTIPLE MYELOMA
     Dosage: 5 MG, UNK
     Route: 048
  3. ZOMETA [Suspect]
     Indication: MULTIPLE MYELOMA
     Dosage: 4 MG, QMO
     Route: 041
     Dates: start: 20090326, end: 20101008
  4. ALKERAN [Concomitant]
     Indication: MULTIPLE MYELOMA
     Dosage: 2 MG, UNK
     Route: 048

REACTIONS (7)
  - SOFT TISSUE INFECTION [None]
  - OSTEONECROSIS OF JAW [None]
  - PAIN IN JAW [None]
  - SOFT TISSUE INFLAMMATION [None]
  - PURULENCE [None]
  - BONE LESION [None]
  - OSTEITIS [None]
